FAERS Safety Report 8585117-2 (Version None)
Quarter: 2012Q3

REPORT INFORMATION
  Report Type: 
  Country: None (occurrence: None)
  Receive Date: 20120810
  Receipt Date: 20120803
  Transmission Date: 20120928
  Serious: Yes (Other)
  Sender: FDA-Public Use
  Company Number: PL-GENZYME-FLUD-1001529

PATIENT
  Age: 9 Year
  Sex: Female

DRUGS (11)
  1. DEFEROXAMINE MESYLATE [Concomitant]
     Indication: HAEMOSIDEROSIS
     Dosage: UNK
     Route: 042
  2. METHOTREXATE [Concomitant]
     Indication: PROPHYLAXIS AGAINST GRAFT VERSUS HOST DISEASE
     Dosage: UNK
     Route: 065
  3. MYCOPHENOLATE MOFETIL [Concomitant]
     Indication: PROPHYLAXIS AGAINST GRAFT VERSUS HOST DISEASE
     Dosage: UNK
     Route: 065
  4. THYMOGLOBULIN [Concomitant]
     Indication: BONE MARROW CONDITIONING REGIMEN
     Dosage: 10 MG/KG, UNK
     Route: 065
  5. CYCLOSPORINE [Concomitant]
     Indication: PROPHYLAXIS AGAINST GRAFT VERSUS HOST DISEASE
     Dosage: UNK
     Route: 065
  6. NEUPOGEN [Concomitant]
     Indication: PRODUCT USED FOR UNKNOWN INDICATION
     Dosage: UNK
     Route: 065
  7. FLUDARA [Suspect]
     Indication: BONE MARROW CONDITIONING REGIMEN
     Dosage: 160 MG/M2, UNK
     Route: 065
  8. TIOTEPA [Concomitant]
     Indication: BONE MARROW CONDITIONING REGIMEN
     Dosage: 10 MG/KG OF BODY MASS, UNK
     Route: 065
  9. TREOSULFAN [Concomitant]
     Indication: BONE MARROW CONDITIONING REGIMEN
     Dosage: 42 MG/M2, UNK
     Route: 065
  10. DEFERASIROX [Concomitant]
     Indication: HAEMOSIDEROSIS
     Dosage: 31.25 MG/KG, UNK
     Route: 048
     Dates: start: 20100324
  11. DEFERASIROX [Concomitant]
     Dosage: 23.5 MG/KG, UNK
     Route: 048
     Dates: end: 20110720

REACTIONS (6)
  - BK VIRUS INFECTION [None]
  - ADENOVIRUS INFECTION [None]
  - CYTOMEGALOVIRUS INFECTION [None]
  - BLASTOCYSTIS INFECTION [None]
  - HAEMOCHROMATOSIS [None]
  - SEPSIS [None]
